FAERS Safety Report 4840294-1 (Version None)
Quarter: 2005Q4

REPORT INFORMATION
  Report Type: 
  Country: None (occurrence: None)
  Receive Date: 20051020
  Receipt Date: 20050728
  Transmission Date: 20060501
  Serious: Yes (Other)
  Sender: FDA-Public Use
  Company Number: US-2005-015164

PATIENT
  Age: 59 Year
  Sex: Female
  Weight: 67.1 kg

DRUGS (4)
  1. ULTRAVIST (PHARMACY BULK) [Suspect]
     Indication: COMPUTERISED TOMOGRAM ABDOMEN
     Dosage: 100 ML, 1 DOSE, INTRAVENOUS
     Route: 042
     Dates: start: 20050615, end: 20050615
  2. LISINOPRIL [Concomitant]
  3. LEVOTHYROXINE SODIUM [Concomitant]
  4. ASPIRIN [Concomitant]

REACTIONS (10)
  - BLOOD PRESSURE FLUCTUATION [None]
  - CHEST DISCOMFORT [None]
  - DYSPHONIA [None]
  - DYSPNOEA [None]
  - FACE OEDEMA [None]
  - HEART RATE INCREASED [None]
  - NASAL CONGESTION [None]
  - OXYGEN SATURATION DECREASED [None]
  - PERIORBITAL OEDEMA [None]
  - SNEEZING [None]
